FAERS Safety Report 11434281 (Version 3)
Quarter: 2015Q4

REPORT INFORMATION
  Report Type: Spontaneous
  Country: JP (occurrence: JP)
  Receive Date: 20150831
  Receipt Date: 20151014
  Transmission Date: 20160304
  Serious: Yes (Hospitalization, Other)
  Sender: FDA-Public Use
  Company Number: JP-ASTELLAS-2015JP017579

PATIENT
  Age: 7 Year
  Sex: Female
  Weight: 28 kg

DRUGS (16)
  1. FUNGUARD [Suspect]
     Active Substance: MICAFUNGIN SODIUM
     Indication: NEUTROPENIA
  2. LEUNASE [Concomitant]
     Active Substance: ASPARAGINASE
     Indication: ACUTE LYMPHOCYTIC LEUKAEMIA
     Dosage: 9600 U/DAY, ONCE DAILY, 2 TIMES PER WEEK
     Route: 030
     Dates: start: 20150722, end: 20150815
  3. PANTOSIN [Concomitant]
     Active Substance: PANTETHINE
     Indication: PROPHYLAXIS
     Dosage: 20 MG/DAY, TWICE DAILY, 5 TIMES PER WEEK
     Route: 042
     Dates: start: 20150722, end: 20150816
  4. CYLOCIDE [Concomitant]
     Active Substance: CYTARABINE
     Route: 029
     Dates: start: 20150807, end: 20150814
  5. STRONGER NEO-MINOPHAGEN C [Concomitant]
     Active Substance: AMMONIUM GLYCYRRHIZATE\CYSTEINE HYDROCHLORIDE\GLYCINE
     Indication: HEPATIC FUNCTION ABNORMAL
     Route: 042
     Dates: start: 20150803, end: 20150825
  6. BAKTAR [Suspect]
     Active Substance: SULFAMETHOXAZOLE\TRIMETHOPRIM
     Indication: ANTIFUNGAL PROPHYLAXIS
     Dosage: 2.5 MG/DAY, TWICE DAILY, 3 TIMES PER WEEK
     Route: 048
     Dates: start: 20150116, end: 20150828
  7. CEFOTAXIME [Concomitant]
     Active Substance: CEFOTAXIME SODIUM
     Indication: NEUTROPENIA
     Dosage: 0.5 G, TWICE DAILY
     Route: 041
     Dates: start: 20150810, end: 20150823
  8. FUNGUARD [Suspect]
     Active Substance: MICAFUNGIN SODIUM
     Indication: INFECTION PROPHYLAXIS
     Route: 041
     Dates: start: 20150810, end: 20150821
  9. THERARUBICIN                       /00963102/ [Concomitant]
     Indication: ACUTE LYMPHOCYTIC LEUKAEMIA
     Route: 041
     Dates: start: 20150722, end: 20150729
  10. LEUKERIN [Concomitant]
     Active Substance: MERCAPTOPURINE
     Indication: ACUTE LYMPHOCYTIC LEUKAEMIA
     Dosage: 0.58 G, ONCE DAILY
     Route: 048
     Dates: start: 20150805, end: 20150818
  11. DECADRON                           /00016002/ [Concomitant]
     Active Substance: DEXAMETHASONE
     Indication: ACUTE LYMPHOCYTIC LEUKAEMIA
     Dosage: 0.8 ML, THRICE DAILY
     Route: 042
     Dates: start: 20150722, end: 20150804
  12. ENDOXAN                            /00021101/ [Concomitant]
     Active Substance: CYCLOPHOSPHAMIDE
     Indication: ACUTE LYMPHOCYTIC LEUKAEMIA
     Route: 041
     Dates: start: 20150805, end: 20150805
  13. CYLOCIDE [Concomitant]
     Active Substance: CYTARABINE
     Indication: ACUTE LYMPHOCYTIC LEUKAEMIA
     Dosage: 72 MG/DAY, ONCE DAILY, 4 TIMES PER WEEK
     Route: 041
     Dates: start: 20150807, end: 20150817
  14. METHOTREXATE [Concomitant]
     Active Substance: METHOTREXATE
     Indication: ACUTE LYMPHOCYTIC LEUKAEMIA
     Route: 029
     Dates: start: 20150807, end: 20150814
  15. PREDONINE [Concomitant]
     Active Substance: PREDNISOLONE\PREDNISOLONE ACETATE\PREDNISOLONE SODIUM SUCCINATE
     Indication: ACUTE LYMPHOCYTIC LEUKAEMIA
     Route: 029
     Dates: start: 20150807, end: 20150814
  16. ONCOVIN [Concomitant]
     Active Substance: VINCRISTINE SULFATE
     Indication: ACUTE LYMPHOCYTIC LEUKAEMIA
     Route: 042
     Dates: start: 20150722, end: 20150812

REACTIONS (1)
  - Rhabdomyolysis [Recovered/Resolved]

NARRATIVE: CASE EVENT DATE: 20150817
